FAERS Safety Report 5967651-4 (Version None)
Quarter: 2008Q4

REPORT INFORMATION
  Report Type: 
  Country: None (occurrence: None)
  Receive Date: 20081126
  Receipt Date: 20081118
  Transmission Date: 20090506
  Serious: Yes (Other)
  Sender: FDA-Public Use
  Company Number: PHEH2008US10364

PATIENT
  Sex: Female

DRUGS (1)
  1. FEMARA [Suspect]
     Dosage: UNK
     Dates: start: 20080804, end: 20080828

REACTIONS (13)
  - AFFECT LABILITY [None]
  - BURNING SENSATION [None]
  - CHROMATURIA [None]
  - DYSURIA [None]
  - GINGIVAL BLEEDING [None]
  - LOSS OF CONSCIOUSNESS [None]
  - MADAROSIS [None]
  - MOUTH ULCERATION [None]
  - NAUSEA [None]
  - NIGHTMARE [None]
  - PAIN [None]
  - PRESYNCOPE [None]
  - PRURITUS [None]
